FAERS Safety Report 12851898 (Version 1)
Quarter: 2016Q4

REPORT INFORMATION
  Report Type: Spontaneous
  Country: US (occurrence: US)
  Receive Date: 20161014
  Receipt Date: 20161014
  Transmission Date: 20170207
  Serious: No
  Sender: FDA-Public Use
  Company Number: None

PATIENT
  Age: 51 Year
  Sex: Male

DRUGS (2)
  1. HARVONI [Suspect]
     Active Substance: LEDIPASVIR\SOFOSBUVIR
     Indication: HEPATITIS C
     Dosage: 90-400 1QD ORAL
     Route: 048
     Dates: start: 20160829
  2. HARVONI [Suspect]
     Active Substance: LEDIPASVIR\SOFOSBUVIR
     Indication: TYPE 2 DIABETES MELLITUS
     Dosage: 90-400 1QD ORAL
     Route: 048
     Dates: start: 20160829

REACTIONS (2)
  - Blood pressure increased [None]
  - Epistaxis [None]

NARRATIVE: CASE EVENT DATE: 20161014
